FAERS Safety Report 8903634 (Version 1)
Quarter: 2012Q4

REPORT INFORMATION
  Report Type: 
  Country: US (occurrence: US)
  Receive Date: 20121113
  Receipt Date: 20121113
  Transmission Date: 20130627
  Serious: No
  Sender: FDA-Public Use
  Company Number: US-B.I. PHARMACEUTICALS,INC./RIDGEFIELD-2012-BP-27486BP

PATIENT
  Age: 71 Year
  Sex: Female
  Weight: 77 kg

DRUGS (2)
  1. PRADAXA [Suspect]
     Indication: ATRIAL FIBRILLATION
     Dosage: 300 mg
     Route: 048
     Dates: start: 201205
  2. METOPROLOL [Concomitant]
     Indication: ARRHYTHMIA
     Dosage: 50 mg
     Route: 048

REACTIONS (1)
  - Back pain [Not Recovered/Not Resolved]
